FAERS Safety Report 11424639 (Version 3)
Quarter: 2021Q2

REPORT INFORMATION
  Report Type: Spontaneous
  Country: PL (occurrence: PL)
  Receive Date: 20150827
  Receipt Date: 20210512
  Transmission Date: 20210716
  Serious: Yes (Death, Hospitalization, Other)
  Sender: FDA-Public Use
  Company Number: PHHY2015PL102211

PATIENT
  Age: 33 Year
  Sex: Male

DRUGS (2)
  1. CYCLOSPORINE. [Suspect]
     Active Substance: CYCLOSPORINE
     Indication: BONE MARROW FAILURE
     Dosage: UNK
     Route: 065
  2. CYCLOSPORINE. [Suspect]
     Active Substance: CYCLOSPORINE
     Indication: IMMUNOSUPPRESSANT DRUG THERAPY

REACTIONS (13)
  - Multiple organ dysfunction syndrome [Fatal]
  - Embolism [Unknown]
  - Fungal endocarditis [Fatal]
  - Sepsis [Unknown]
  - Lung abscess [Unknown]
  - Peripheral ischaemia [Unknown]
  - Thrombocytopenia [Unknown]
  - Acute kidney injury [Unknown]
  - Granulocytosis [Unknown]
  - Salmonellosis [Unknown]
  - Embolism arterial [Unknown]
  - Aspergillus infection [Fatal]
  - Anaemia [Unknown]
